FAERS Safety Report 10162647 (Version 1)
Quarter: 2014Q2

REPORT INFORMATION
  Report Type: Spontaneous
  Country: US (occurrence: US)
  Receive Date: 20140509
  Receipt Date: 20140509
  Transmission Date: 20141212
  Serious: No
  Sender: FDA-Public Use
  Company Number: US-PFIZER INC-2014128291

PATIENT
  Age: 59 Year
  Sex: Male
  Weight: 102.04 kg

DRUGS (2)
  1. CHANTIX [Suspect]
     Indication: SMOKING CESSATION THERAPY
     Dosage: 0.5 MG, DAILY
     Dates: start: 20140503, end: 201405
  2. CHANTIX [Suspect]
     Dosage: UNK
     Dates: start: 201405

REACTIONS (1)
  - Tobacco user [Unknown]
